FAERS Safety Report 15634884 (Version 2)
Quarter: 2018Q4

REPORT INFORMATION
  Report Type: Spontaneous
  Country: MX (occurrence: MX)
  Receive Date: 20181119
  Receipt Date: 20181128
  Transmission Date: 20190205
  Serious: Yes (Life-Threatening)
  Sender: FDA-Public Use
  Company Number: MX-SEATTLE GENETICS-2018SGN02951

PATIENT
  Age: 23 Year
  Sex: Male
  Weight: 132 kg

DRUGS (1)
  1. ADCETRIS [Suspect]
     Active Substance: BRENTUXIMAB VEDOTIN
     Indication: HODGKIN^S DISEASE
     Dosage: UNK
     Route: 042
     Dates: end: 20181011

REACTIONS (5)
  - Bronchospasm [Recovered/Resolved]
  - Erythema [Recovered/Resolved]
  - Abdominal pain [Recovered/Resolved]
  - Rash [Recovered/Resolved]
  - Laryngospasm [Recovered/Resolved]
